FAERS Safety Report 12812352 (Version 21)
Quarter: 2017Q3

REPORT INFORMATION
  Report Type: Spontaneous
  Country: US (occurrence: US)
  Receive Date: 20161005
  Receipt Date: 20170707
  Transmission Date: 20171127
  Serious: Yes (Death, Congenital Anomaly, Other)
  Sender: FDA-Public Use
  Company Number: PHEH2016US025561

PATIENT
  Sex: Male

DRUGS (3)
  1. ZOFRAN [Suspect]
     Active Substance: ONDANSETRON HYDROCHLORIDE
     Indication: FOETAL EXPOSURE DURING PREGNANCY
     Dosage: MOTHER DOSE: 04 MG, Q6H
     Route: 064
  2. ONDANSETRON [Suspect]
     Active Substance: ONDANSETRON
     Indication: FOETAL EXPOSURE DURING PREGNANCY
     Dosage: MOHER DOSE: 08 MG, PRN
     Route: 064
  3. ZOFRAN ODT [Suspect]
     Active Substance: ONDANSETRON HYDROCHLORIDE
     Indication: FOETAL EXPOSURE DURING PREGNANCY
     Dosage: MOTHER DOSE: 01 DF, Q8H
     Route: 064

REACTIONS (29)
  - Heart disease congenital [Fatal]
  - Endocardial fibroelastosis [Unknown]
  - Nipple disorder [Unknown]
  - Rib deformity [Unknown]
  - Atelectasis neonatal [Unknown]
  - Cardiac arrest neonatal [Unknown]
  - Cleft lip [Unknown]
  - Mitral valve hypoplasia [Unknown]
  - Double outlet right ventricle [Unknown]
  - Congenital aortic anomaly [Unknown]
  - Inferior vena caval occlusion [Unknown]
  - Foetal exposure during pregnancy [Unknown]
  - Injury [Unknown]
  - Ventricular hypoplasia [Unknown]
  - Multiple congenital abnormalities [Unknown]
  - Neonatal respiratory distress syndrome [Unknown]
  - Cyanosis neonatal [Unknown]
  - Cleft palate [Unknown]
  - Talipes [Unknown]
  - Neonatal respiratory failure [Unknown]
  - Cryptorchism [Unknown]
  - Dysmorphism [Unknown]
  - Tricuspid valve incompetence [Unknown]
  - Neonatal hypotension [Unknown]
  - Hypoxia [Unknown]
  - Micropenis [Unknown]
  - Ventricular septal defect [Unknown]
  - Generalised oedema [Unknown]
  - Cardiomegaly [Unknown]
